FAERS Safety Report 4687311-X (Version None)
Quarter: 2005Q2

REPORT INFORMATION
  Report Type: 
  Country: None (occurrence: None)
  Receive Date: 20050608
  Receipt Date: 20050524
  Transmission Date: 20051028
  Serious: Yes (Hospitalization)
  Sender: FDA-Public Use
  Company Number: 2005BI010251

PATIENT
  Age: 66 Year
  Sex: Female
  Weight: 52.1637 kg

DRUGS (4)
  1. AVONEX [Suspect]
     Indication: MULTIPLE SCLEROSIS
     Dosage: SEE IMAGE
     Route: 030
     Dates: start: 20030101, end: 20030101
  2. AVONEX [Suspect]
     Indication: MULTIPLE SCLEROSIS
     Dosage: 30 UG;QW;IM
     Route: 030
     Dates: start: 20030101, end: 20050502
  3. DITROPAN [Concomitant]
  4. AZULFIDINE [Concomitant]

REACTIONS (7)
  - ASTHENIA [None]
  - FALL [None]
  - HEAD INJURY [None]
  - HYPERTENSION [None]
  - PLATELET COUNT DECREASED [None]
  - SOMNOLENCE [None]
  - SUBDURAL HAEMATOMA [None]
